FAERS Safety Report 14712413 (Version 4)
Quarter: 2020Q2

REPORT INFORMATION
  Report Type: Spontaneous
  Country: US (occurrence: US)
  Receive Date: 20180404
  Receipt Date: 20200529
  Transmission Date: 20200713
  Serious: Yes (Other)
  Sender: FDA-Public Use
  Company Number: US-UCBSA-2017051515

PATIENT
  Age: 70 Year
  Sex: Male

DRUGS (13)
  1. FUROSEMIDE. [Concomitant]
     Active Substance: FUROSEMIDE
     Indication: PRODUCT USED FOR UNKNOWN INDICATION
     Dosage: 20 MG
  2. ACETAMINOPHEN. [Concomitant]
     Active Substance: ACETAMINOPHEN
     Indication: PRODUCT USED FOR UNKNOWN INDICATION
  3. NIFEDIPINE. [Concomitant]
     Active Substance: NIFEDIPINE
     Indication: PRODUCT USED FOR UNKNOWN INDICATION
  4. TRAMADOL HYDROCHLORIDE. [Concomitant]
     Active Substance: TRAMADOL HYDROCHLORIDE
     Indication: PRODUCT USED FOR UNKNOWN INDICATION
     Dosage: 50 MG
  5. CEFUROXIME. [Concomitant]
     Active Substance: CEFUROXIME
     Indication: PRODUCT USED FOR UNKNOWN INDICATION
  6. HYDROCODONE BITARTRATE AND ACETAMINOPHEN [Concomitant]
     Active Substance: ACETAMINOPHEN\HYDROCODONE BITARTRATE
     Indication: PRODUCT USED FOR UNKNOWN INDICATION
  7. CIMZIA [Suspect]
     Active Substance: CERTOLIZUMAB PEGOL
     Indication: ANKYLOSING SPONDYLITIS
     Dosage: 200 MG, UNK
     Route: 058
     Dates: start: 20171020, end: 2017
  8. TAMSULOSIN [Concomitant]
     Active Substance: TAMSULOSIN
     Indication: PRODUCT USED FOR UNKNOWN INDICATION
  9. TOLTERODINE [Concomitant]
     Active Substance: TOLTERODINE
     Indication: PRODUCT USED FOR UNKNOWN INDICATION
     Dosage: 1 MG
  10. HYDROCODONE BITARTRATE. [Concomitant]
     Active Substance: HYDROCODONE BITARTRATE
     Indication: PRODUCT USED FOR UNKNOWN INDICATION
  11. SPIRONOLACTONE. [Concomitant]
     Active Substance: SPIRONOLACTONE
     Indication: PRODUCT USED FOR UNKNOWN INDICATION
  12. CIMZIA [Suspect]
     Active Substance: CERTOLIZUMAB PEGOL
     Indication: RHEUMATOID ARTHRITIS
     Dosage: 200 MG, EV 2 WEEKS(QOW)
     Route: 058
     Dates: start: 2017
  13. OMEPRAZOLE. [Concomitant]
     Active Substance: OMEPRAZOLE
     Indication: PRODUCT USED FOR UNKNOWN INDICATION
     Dosage: 20 MG

REACTIONS (5)
  - Sinusitis [Not Recovered/Not Resolved]
  - Infection [Recovered/Resolved]
  - Off label use [Unknown]
  - Musculoskeletal stiffness [Unknown]
  - Pain [Unknown]

NARRATIVE: CASE EVENT DATE: 201711
